FAERS Safety Report 23775481 (Version 1)
Quarter: 2024Q2

REPORT INFORMATION
  Report Type: Spontaneous
  Country: BG (occurrence: BG)
  Receive Date: 20240423
  Receipt Date: 20240423
  Transmission Date: 20240716
  Serious: Yes (Death, Hospitalization, Other)
  Sender: FDA-Public Use
  Company Number: BG-GSK-BG2024GSK050837

PATIENT

DRUGS (3)
  1. PROPAFENONE [Suspect]
     Active Substance: PROPAFENONE
     Indication: Atrial fibrillation
     Dosage: 150 MG, 1D
  2. TRIMETAZIDINE DIHYDROCHLORIDE [Concomitant]
     Active Substance: TRIMETAZIDINE DIHYDROCHLORIDE
     Indication: Atrial fibrillation
     Dosage: 35 MG, 1D
  3. ACENOCOUMAROL [Concomitant]
     Active Substance: ACENOCOUMAROL
     Indication: Atrial fibrillation
     Dosage: 4 MG (AS SCHEDULED)

REACTIONS (14)
  - Nodular melanoma [Fatal]
  - Asthenia [Unknown]
  - Oedema peripheral [Unknown]
  - Micturition frequency decreased [Unknown]
  - Abdominal discomfort [Unknown]
  - Abdominal rigidity [Unknown]
  - Cough [Unknown]
  - Skin lesion [Unknown]
  - Pigmentation disorder [Unknown]
  - Malignant peritoneal neoplasm [Unknown]
  - Metastases to liver [Unknown]
  - Ascites [Unknown]
  - Septic shock [Unknown]
  - Therapy cessation [Unknown]
